FAERS Safety Report 6495551-2 (Version None)
Quarter: 2009Q4

REPORT INFORMATION
  Report Type: 
  Country: None (occurrence: None)
  Receive Date: 20091214
  Receipt Date: 20090710
  Transmission Date: 20100525
  Serious: No
  Sender: FDA-Public Use
  Company Number: US-BRISTOL-MYERS SQUIBB COMPANY-14698336

PATIENT
  Age: 12 Year
  Sex: Male
  Weight: 91 kg

DRUGS (2)
  1. ABILIFY [Suspect]
     Indication: AGGRESSION
     Dosage: DOSE INCREASED TO 10 MG AND FURTHER INCREASED TO 15 MG.
     Dates: start: 20050101
  2. COGENTIN [Concomitant]

REACTIONS (2)
  - AGGRESSION [None]
  - WEIGHT INCREASED [None]
